FAERS Safety Report 5903699-3 (Version None)
Quarter: 2008Q3

REPORT INFORMATION
  Report Type: 
  Country: None (occurrence: None)
  Receive Date: 20080930
  Receipt Date: 20080926
  Transmission Date: 20090109
  Serious: Yes (Death, Hospitalization)
  Sender: FDA-Public Use
  Company Number: JP-SANOFI-SYNTHELABO-F01200801495

PATIENT
  Sex: Male
  Weight: 71 kg

DRUGS (8)
  1. DEPAS [Concomitant]
     Dosage: UNK
     Dates: start: 20070731, end: 20080220
  2. LAC-B [Concomitant]
     Dosage: UNK
     Dates: start: 20070731, end: 20080220
  3. DAI-KENCHU-TO [Concomitant]
     Dosage: UNK
     Dates: start: 20070731, end: 20080220
  4. GASMOTIN [Concomitant]
     Dosage: UNK
     Dates: start: 20070731, end: 20080220
  5. AVASTIN [Suspect]
     Route: 041
     Dates: start: 20071226, end: 20071226
  6. LEUCOVORIN CALCIUM [Suspect]
     Route: 041
     Dates: start: 20080109, end: 20080109
  7. FLUOROURACIL [Suspect]
     Route: 042
     Dates: start: 20080109, end: 20080109
  8. ELPLAT [Suspect]
     Indication: RECTAL CANCER RECURRENT
     Route: 041
     Dates: start: 20071031, end: 20071031

REACTIONS (3)
  - DISEASE PROGRESSION [None]
  - DISSEMINATED INTRAVASCULAR COAGULATION [None]
  - MUCOSAL HAEMORRHAGE [None]
